FAERS Safety Report 12242454 (Version 1)
Quarter: 2016Q2

REPORT INFORMATION
  Report Type: Spontaneous
  Country: US (occurrence: None)
  Receive Date: 20160405
  Receipt Date: 20160405
  Transmission Date: 20160815
  Serious: No
  Sender: FDA-Public Use
  Company Number: None

PATIENT
  Age: 87 Year
  Sex: Female
  Weight: 155 kg

DRUGS (14)
  1. LEVOFLOXACIN 750 MG ZYDUS [Suspect]
     Active Substance: LEVOFLOXACIN
     Indication: SECRETION DISCHARGE
     Dosage: 10 PILLS 1 X DAY ORAL
     Route: 048
     Dates: start: 20160320, end: 20160323
  2. POTASSIUM [Concomitant]
     Active Substance: POTASSIUM
  3. VITAMIN E [Concomitant]
     Active Substance: .ALPHA.-TOCOPHEROL
  4. LEVOFLOXACIN 750 MG ZYDUS [Suspect]
     Active Substance: LEVOFLOXACIN
     Indication: BODY TEMPERATURE INCREASED
     Dosage: 10 PILLS 1 X DAY ORAL
     Route: 048
     Dates: start: 20160320, end: 20160323
  5. MULTI VITAMIN [Concomitant]
     Active Substance: VITAMINS
  6. LEVOFLOXACIN 750 MG ZYDUS [Suspect]
     Active Substance: LEVOFLOXACIN
     Indication: NASOPHARYNGITIS
     Dosage: 10 PILLS 1 X DAY ORAL
     Route: 048
     Dates: start: 20160320, end: 20160323
  7. CLONIDINE. [Concomitant]
     Active Substance: CLONIDINE
  8. SIMVASTATIN. [Concomitant]
     Active Substance: SIMVASTATIN
  9. ATENOLOL. [Concomitant]
     Active Substance: ATENOLOL
  10. LEVOFLOXACIN 750 MG ZYDUS [Suspect]
     Active Substance: LEVOFLOXACIN
     Indication: COUGH
     Dosage: 10 PILLS 1 X DAY ORAL
     Route: 048
     Dates: start: 20160320, end: 20160323
  11. AMLODIPINE [Concomitant]
     Active Substance: AMLODIPINE BESYLATE
  12. DIOVAN HCL [Concomitant]
  13. VITAMIN C [Concomitant]
     Active Substance: ASCORBIC ACID
  14. PROBIOTIC [Concomitant]
     Active Substance: PROBIOTICS NOS

REACTIONS (3)
  - Arthralgia [None]
  - Abasia [None]
  - Pain in extremity [None]
